FAERS Safety Report 17139472 (Version 1)
Quarter: 2019Q4

REPORT INFORMATION
  Report Type: Spontaneous
  Country: US (occurrence: US)
  Receive Date: 20191210
  Receipt Date: 20191210
  Transmission Date: 20200122
  Serious: Yes (Disabling)
  Sender: FDA-Public Use
  Company Number: None

PATIENT
  Age: 62 Year
  Sex: Female
  Weight: 58.95 kg

DRUGS (7)
  1. ESTER C (CALCIUM ASCORBATE) [Concomitant]
     Active Substance: CALCIUM ASCORBATE
  2. PAROXETINE. [Concomitant]
     Active Substance: PAROXETINE
  3. CALCIUM [Concomitant]
     Active Substance: CALCIUM
  4. MONTELUKAST [Suspect]
     Active Substance: MONTELUKAST SODIUM
     Indication: ASTHMA EXERCISE INDUCED
     Route: 048
  5. VITAMIN K2 [Concomitant]
     Active Substance: MENAQUINONE 6
  6. OMEGA 3 [Concomitant]
     Active Substance: OMEGA-3 FATTY ACIDS
  7. MAGNESIUM [Concomitant]
     Active Substance: MAGNESIUM

REACTIONS (5)
  - Memory impairment [None]
  - Anxiety [None]
  - Nightmare [None]
  - Depression [None]
  - Suicidal ideation [None]
